FAERS Safety Report 7689728-8 (Version None)
Quarter: 2011Q3

REPORT INFORMATION
  Report Type: 
  Country: None (occurrence: None)
  Receive Date: 20110817
  Receipt Date: 20110803
  Transmission Date: 20111222
  Serious: Yes (Hospitalization, Other)
  Sender: FDA-Public Use
  Company Number: US-CELGENEUS-163-21880-11010989

PATIENT
  Sex: Female
  Weight: 52.755 kg

DRUGS (29)
  1. REVLIMID [Suspect]
     Dosage: 15 MILLIGRAM
     Route: 048
     Dates: start: 20100201
  2. REVLIMID [Suspect]
     Dosage: 15 MILLIGRAM
     Route: 048
     Dates: start: 20110301
  3. GABAPENTIN [Concomitant]
     Dosage: 900 MILLIGRAM
     Route: 048
  4. FLONASE [Concomitant]
     Route: 065
  5. VITAMIN B6 [Concomitant]
     Dosage: 1
     Route: 048
  6. CIPROFLOXACIN [Concomitant]
     Indication: PROPHYLAXIS
     Route: 065
     Dates: start: 20110601
  7. ACYCLOVIR [Concomitant]
     Dosage: 400 MILLIGRAM
     Route: 065
  8. OMEPRAZOLE [Concomitant]
     Dosage: 20 MILLIGRAM
     Route: 048
  9. REVLIMID [Suspect]
     Dosage: 15 MILLIGRAM
     Route: 048
     Dates: start: 20080301, end: 20081201
  10. REVLIMID [Suspect]
     Dosage: 10 MILLIGRAM
     Route: 048
     Dates: start: 20101012
  11. DICLOFENAC SODIUM [Concomitant]
     Dosage: 50 MILLIGRAM
     Route: 065
  12. ASPIRIN [Concomitant]
     Dosage: 81 MILLIGRAM
     Route: 065
  13. MULTI-VITAMINS [Concomitant]
     Route: 065
  14. LEVOXYL [Concomitant]
     Dosage: 50 MICROGRAM
     Route: 048
  15. FOLIC ACID [Concomitant]
     Dosage: 400 MILLIGRAM
     Route: 048
  16. REVLIMID [Suspect]
     Dosage: 20 MILLIGRAM
     Route: 048
     Dates: start: 20070801, end: 20080201
  17. FLAGYL [Concomitant]
     Indication: PROPHYLAXIS
     Route: 065
     Dates: start: 20110601
  18. RESTASIS [Concomitant]
     Route: 047
  19. ACIDOPHILUS [Concomitant]
     Dosage: 1
     Route: 048
  20. REVLIMID [Suspect]
     Indication: MULTIPLE MYELOMA
     Dosage: 25 MILLIGRAM
     Route: 048
     Dates: start: 20061001, end: 20070801
  21. REVLIMID [Suspect]
     Dosage: 20MG-25MG-15MG
     Route: 048
     Dates: start: 20081201
  22. RED BLOOD CELLS [Concomitant]
     Dosage: 2 UNITS
     Route: 041
     Dates: start: 20110601
  23. DETROL [Concomitant]
     Dosage: 4 MILLIGRAM
     Route: 048
  24. CALCIUM CARBONATE [Concomitant]
     Indication: OSTEOPOROSIS
     Route: 065
  25. VITAMIN D [Concomitant]
     Indication: OSTEOPOROSIS
     Dosage: 1000 MILLIGRAM
     Route: 048
  26. GABAPENTIN [Concomitant]
     Dosage: 600 MILLIGRAM
     Route: 048
  27. LANTUS [Concomitant]
     Dosage: 12 UNITS
     Route: 065
  28. PRANDIN [Concomitant]
     Dosage: 2 MILLIGRAM
     Route: 048
  29. CALCIUM CITRATE + VITAMIN D [Concomitant]
     Dosage: 600 MILLIGRAM
     Route: 048

REACTIONS (12)
  - DIARRHOEA [None]
  - MULTIPLE MYELOMA [None]
  - DEHYDRATION [None]
  - SUPRAVENTRICULAR TACHYCARDIA [None]
  - BRONCHITIS [None]
  - SEPSIS [None]
  - GASTROENTERITIS [None]
  - HYPOMAGNESAEMIA [None]
  - BLOOD IMMUNOGLOBULIN G INCREASED [None]
  - NEUTROPENIA [None]
  - ANAEMIA [None]
  - PRESYNCOPE [None]
